FAERS Safety Report 5405304-1 (Version None)
Quarter: 2007Q3

REPORT INFORMATION
  Report Type: 
  Country: None (occurrence: None)
  Receive Date: 20070803
  Receipt Date: 20070725
  Transmission Date: 20080115
  Serious: Yes (Hospitalization)
  Sender: FDA-Public Use
  Company Number: B0480906A

PATIENT
  Age: 56 Year
  Sex: Male

DRUGS (12)
  1. ZELITREX [Suspect]
     Dosage: 2TAB PER DAY
     Route: 048
     Dates: start: 20070612, end: 20070625
  2. BACTRIM [Suspect]
     Route: 048
     Dates: start: 20070612, end: 20070622
  3. CEFROM [Suspect]
     Dosage: 2G TWICE PER DAY
     Route: 042
     Dates: start: 20070623, end: 20070625
  4. TARGOCID [Suspect]
     Dosage: 400MG PER DAY
     Route: 042
     Dates: start: 20070623, end: 20070625
  5. TOBRAMYCINE [Suspect]
     Dosage: 150MG PER DAY
     Route: 042
     Dates: start: 20070623, end: 20070623
  6. OMEPRAZOLE [Suspect]
     Dosage: 1UNIT PER DAY
     Route: 048
     Dates: start: 20070623, end: 20070624
  7. SPECIAFOLDINE [Concomitant]
     Route: 048
     Dates: start: 20070612
  8. CIPROFLOXACIN HCL [Concomitant]
     Dosage: 500MG TWICE PER DAY
     Dates: start: 20070622, end: 20070625
  9. OROKEN [Concomitant]
     Dosage: 200MG TWICE PER DAY
     Dates: start: 20070622, end: 20070625
  10. GRANOCYTE [Concomitant]
     Dates: start: 20070623, end: 20070624
  11. ZITHROMAX [Concomitant]
     Dates: start: 20070701
  12. DAPSONE [Concomitant]

REACTIONS (6)
  - LIP SWELLING [None]
  - PRURITUS [None]
  - PYREXIA [None]
  - RASH ERYTHEMATOUS [None]
  - RASH MACULO-PAPULAR [None]
  - TOXIC SKIN ERUPTION [None]
